FAERS Safety Report 4551971-4 (Version None)
Quarter: 2005Q1

REPORT INFORMATION
  Report Type: 
  Country: None (occurrence: None)
  Receive Date: 20050112
  Receipt Date: 20041230
  Transmission Date: 20050727
  Serious: Yes (Hospitalization)
  Sender: FDA-Public Use
  Company Number: HQWYE365904JAN05

PATIENT
  Age: 22 Year
  Sex: Female

DRUGS (4)
  1. EFFEXOR XR [Suspect]
     Indication: MAJOR DEPRESSION
     Dosage: 150 MG 1X PER 1 DAY ORAL
     Route: 048
     Dates: start: 20041211, end: 20041230
  2. CLONAZEPAM [Concomitant]
  3. RISPERDAL [Concomitant]
  4. TRILEPTAL [Concomitant]

REACTIONS (5)
  - DYSPNOEA [None]
  - EOSINOPHILIA [None]
  - LUNG DISORDER [None]
  - OXYGEN SATURATION DECREASED [None]
  - PYREXIA [None]
